FAERS Safety Report 13419606 (Version 1)
Quarter: 2017Q2

REPORT INFORMATION
  Report Type: Spontaneous
  Country: US (occurrence: US)
  Receive Date: 20170407
  Receipt Date: 20170407
  Transmission Date: 20170830
  Serious: No
  Sender: FDA-Public Use
  Company Number: US-LUPIN PHARMACEUTICALS INC.-2016-05816

PATIENT
  Age: 73 Year
  Sex: Female

DRUGS (1)
  1. DULOXETINE. [Suspect]
     Active Substance: DULOXETINE
     Indication: PRODUCT USED FOR UNKNOWN INDICATION
     Dosage: 20 MG,UNK,UNKNOWN
     Route: 065

REACTIONS (2)
  - Drug ineffective [Unknown]
  - Pruritus [Unknown]

NARRATIVE: CASE EVENT DATE: 20160420
